FAERS Safety Report 24371482 (Version 1)
Quarter: 2024Q3

REPORT INFORMATION
  Report Type: Spontaneous
  Country: IT (occurrence: IT)
  Receive Date: 20240927
  Receipt Date: 20240927
  Transmission Date: 20241016
  Serious: Yes (Other)
  Sender: PFIZER
  Company Number: None

PATIENT
  Age: 40 Year
  Sex: Female
  Weight: 73 kg

DRUGS (5)
  1. METHOTREXATE SODIUM [Suspect]
     Active Substance: METHOTREXATE SODIUM
     Indication: Peripheral spondyloarthritis
     Dosage: 10 MG, WEEKLY
     Route: 058
     Dates: start: 202406
  2. FOLIC ACID [Suspect]
     Active Substance: FOLIC ACID
     Indication: Prophylaxis
     Dosage: 5 MG, WEEKLY
     Route: 048
     Dates: start: 202406
  3. ERELZI [Suspect]
     Active Substance: ETANERCEPT-SZZS
     Indication: Ankylosing spondylitis
     Dosage: 50 MG, WEEKLY
     Route: 058
     Dates: start: 202406, end: 202407
  4. BUPRENORPHINE [Concomitant]
     Active Substance: BUPRENORPHINE
     Indication: Drug dependence
     Dosage: 1 MG, DAILY
     Route: 048
     Dates: start: 2021
  5. MELATONIN [Concomitant]
     Active Substance: MELATONIN

REACTIONS (2)
  - Breast cancer [Unknown]
  - Psoriasis [Not Recovered/Not Resolved]

NARRATIVE: CASE EVENT DATE: 20240601
